FAERS Safety Report 7057547-1 (Version None)
Quarter: 2010Q4

REPORT INFORMATION
  Report Type: 
  Country: None (occurrence: None)
  Receive Date: 20101022
  Receipt Date: 20101012
  Transmission Date: 20110411
  Serious: Yes (Death)
  Sender: FDA-Public Use
  Company Number: FR-ROCHE-733138

PATIENT
  Sex: Male

DRUGS (2)
  1. VALIUM [Suspect]
     Indication: PRODUCT USED FOR UNKNOWN INDICATION
     Route: 048
     Dates: start: 20100911, end: 20100911
  2. METHADONE [Suspect]
     Indication: PRODUCT USED FOR UNKNOWN INDICATION
     Route: 048
     Dates: start: 20100911, end: 20100911

REACTIONS (6)
  - CARDIO-RESPIRATORY ARREST [None]
  - HEPATIC FAILURE [None]
  - HYPOGLYCAEMIA [None]
  - INTESTINAL ISCHAEMIA [None]
  - LACTIC ACIDOSIS [None]
  - RHABDOMYOLYSIS [None]
